FAERS Safety Report 25418146 (Version 2)
Quarter: 2025Q4

REPORT INFORMATION
  Report Type: Spontaneous
  Country: EU (occurrence: EU)
  Receive Date: 20250610
  Receipt Date: 20251222
  Transmission Date: 20260117
  Serious: Yes (Hospitalization, Other)
  Sender: MYLAN
  Company Number: EU-SANDOZ-SDZ2025DE037207

PATIENT
  Sex: Female

DRUGS (20)
  1. DOXAZOSIN [Suspect]
     Active Substance: DOXAZOSIN MESYLATE
     Indication: Product used for unknown indication
     Dosage: 4 MILLIGRAM
  2. DOXAZOSIN [Suspect]
     Active Substance: DOXAZOSIN MESYLATE
     Dosage: 4 MILLIGRAM
     Route: 065
  3. DOXAZOSIN [Suspect]
     Active Substance: DOXAZOSIN MESYLATE
     Dosage: 4 MILLIGRAM
     Route: 065
  4. DOXAZOSIN [Suspect]
     Active Substance: DOXAZOSIN MESYLATE
     Dosage: 4 MILLIGRAM
  5. IBUPROFEN [Suspect]
     Active Substance: IBUPROFEN
     Indication: Product used for unknown indication
     Dosage: 600 MILLIGRAM, QW
     Dates: start: 20160701, end: 20231231
  6. IBUPROFEN [Suspect]
     Active Substance: IBUPROFEN
     Dosage: 600 MILLIGRAM, QW
     Route: 065
     Dates: start: 20160701, end: 20231231
  7. IBUPROFEN [Suspect]
     Active Substance: IBUPROFEN
     Dosage: 600 MILLIGRAM, QW
     Route: 065
     Dates: start: 20160701, end: 20231231
  8. IBUPROFEN [Suspect]
     Active Substance: IBUPROFEN
     Dosage: 600 MILLIGRAM, QW
     Dates: start: 20160701, end: 20231231
  9. METHOTREXATE [Suspect]
     Active Substance: METHOTREXATE
     Indication: Product used for unknown indication
     Dosage: 17.5 MILLIGRAM
     Dates: start: 20201215, end: 20220621
  10. METHOTREXATE [Suspect]
     Active Substance: METHOTREXATE
     Dosage: 17.5 MILLIGRAM
     Route: 065
     Dates: start: 20201215, end: 20220621
  11. METHOTREXATE [Suspect]
     Active Substance: METHOTREXATE
     Dosage: 17.5 MILLIGRAM
     Route: 065
     Dates: start: 20201215, end: 20220621
  12. METHOTREXATE [Suspect]
     Active Substance: METHOTREXATE
     Dosage: 17.5 MILLIGRAM
     Dates: start: 20201215, end: 20220621
  13. SOLIFENACIN [Suspect]
     Active Substance: SOLIFENACIN
     Indication: Product used for unknown indication
     Dosage: 10 MILLIGRAM
  14. SOLIFENACIN [Suspect]
     Active Substance: SOLIFENACIN
     Dosage: 10 MILLIGRAM
     Route: 065
  15. SOLIFENACIN [Suspect]
     Active Substance: SOLIFENACIN
     Dosage: 10 MILLIGRAM
     Route: 065
  16. SOLIFENACIN [Suspect]
     Active Substance: SOLIFENACIN
     Dosage: 10 MILLIGRAM
  17. COSENTYX [Suspect]
     Active Substance: SECUKINUMAB
     Indication: Product used for unknown indication
     Dosage: 150 MILLIGRAM, Q28D (ALL 4 WEEKS)
     Dates: start: 20220701
  18. COSENTYX [Suspect]
     Active Substance: SECUKINUMAB
     Dosage: 150 MILLIGRAM, Q28D (ALL 4 WEEKS)
     Route: 065
     Dates: start: 20220701
  19. COSENTYX [Suspect]
     Active Substance: SECUKINUMAB
     Dosage: 150 MILLIGRAM, Q28D (ALL 4 WEEKS)
     Route: 065
     Dates: start: 20220701
  20. COSENTYX [Suspect]
     Active Substance: SECUKINUMAB
     Dosage: 150 MILLIGRAM, Q28D (ALL 4 WEEKS)
     Dates: start: 20220701

REACTIONS (1)
  - Ophthalmic herpes zoster [Not Recovered/Not Resolved]

NARRATIVE: CASE EVENT DATE: 20241201
